FAERS Safety Report 9477855 (Version 1)
Quarter: 2013Q3

REPORT INFORMATION
  Report Type: Spontaneous
  Country: US (occurrence: None)
  Receive Date: 20130826
  Receipt Date: 20130826
  Transmission Date: 20140515
  Serious: Yes (Other)
  Sender: FDA-Public Use
  Company Number: None

PATIENT
  Sex: Female
  Weight: 160 kg

DRUGS (2)
  1. PERCOCET [Suspect]
     Indication: BACK PAIN
     Route: 048
     Dates: start: 2011, end: 2012
  2. PERCOCET [Suspect]
     Indication: ARTHRALGIA
     Route: 048
     Dates: start: 2011, end: 2012

REACTIONS (2)
  - Urticaria [None]
  - Product substitution issue [None]
